FAERS Safety Report 13065554 (Version 2)
Quarter: 2017Q1

REPORT INFORMATION
  Report Type: Spontaneous
  Country: US (occurrence: US)
  Receive Date: 20161227
  Receipt Date: 20170124
  Transmission Date: 20170428
  Serious: Yes (Death)
  Sender: FDA-Public Use
  Company Number: US-PFIZER INC-2016592104

PATIENT
  Age: 77 Year
  Sex: Male
  Weight: 65.76 kg

DRUGS (1)
  1. SUTENT [Suspect]
     Active Substance: SUNITINIB MALATE
     Indication: NEOPLASM MALIGNANT
     Dosage: 50 MG, CYCLIC, (D 1-D 28 THEN 14 DAYS OFF)
     Route: 048
     Dates: start: 20161102, end: 20161121

REACTIONS (3)
  - Myocardial infarction [Fatal]
  - Pleural effusion [Fatal]
  - Neoplasm progression [Fatal]

NARRATIVE: CASE EVENT DATE: 20161121
